FAERS Safety Report 4650511-9 (Version None)
Quarter: 2005Q2

REPORT INFORMATION
  Report Type: 
  Country: None (occurrence: None)
  Receive Date: 20050429
  Receipt Date: 20050215
  Transmission Date: 20051028
  Serious: Yes (Disabling)
  Sender: FDA-Public Use
  Company Number: 2005S1002635

PATIENT
  Age: 10 Year
  Sex: Male

DRUGS (6)
  1. CYSTAGON [Suspect]
     Indication: CYSTINOSIS
     Dosage: 55 MG/KG; QD; PO
     Route: 048
     Dates: start: 20021001
  2. CYSTEAMINE CHLORHYDRATE                     SYRUP [Suspect]
     Indication: CYSTINOSIS
     Dosage: 80 MG/KG; QD; PO
     Route: 048
     Dates: start: 20020112, end: 20020930
  3. THYROXIN [Concomitant]
  4. GROWTH HORMONE [Concomitant]
  5. EPOGEN [Concomitant]
  6. ACE INHIBITOR NOS [Concomitant]

REACTIONS (10)
  - BONE PAIN [None]
  - COLLAGEN DISORDER [None]
  - CREATININE RENAL CLEARANCE DECREASED [None]
  - ECCHYMOSIS [None]
  - KNEE DEFORMITY [None]
  - RICKETS [None]
  - SCOLIOSIS [None]
  - SKIN HAEMORRHAGE [None]
  - SKIN LESION [None]
  - SKIN STRIAE [None]
